FAERS Safety Report 23405473 (Version 1)
Quarter: 2024Q1

REPORT INFORMATION
  Report Type: Spontaneous
  Country: US (occurrence: US)
  Receive Date: 20240116
  Receipt Date: 20240116
  Transmission Date: 20240409
  Serious: Yes (Hospitalization, Other)
  Sender: FDA-Public Use
  Company Number: US-TORRENT-00013362

PATIENT
  Age: 30 Year
  Sex: Female

DRUGS (2)
  1. DICHLORPHENAMIDE [Suspect]
     Active Substance: DICHLORPHENAMIDE
     Indication: Product used for unknown indication
     Dosage: UNKNOWN
     Route: 065
     Dates: start: 2023
  2. KEVEYIS [Suspect]
     Active Substance: DICHLORPHENAMIDE
     Indication: Product used for unknown indication
     Dosage: 50 MG, 1XDAY
     Route: 048
     Dates: start: 20221110

REACTIONS (15)
  - Loss of consciousness [Unknown]
  - Hypotension [Unknown]
  - Nervous system disorder [Unknown]
  - Autoimmune disorder [Unknown]
  - COVID-19 [Unknown]
  - Heart rate irregular [Unknown]
  - Seizure like phenomena [Unknown]
  - Cerebrovascular accident [Unknown]
  - Hypokalaemia [Unknown]
  - Dyspnoea [Unknown]
  - Fall [Unknown]
  - Chills [Unknown]
  - Pyrexia [Unknown]
  - Memory impairment [Unknown]
  - Cardiac disorder [Unknown]

NARRATIVE: CASE EVENT DATE: 20230101
